FAERS Safety Report 5950008-X (Version None)
Quarter: 2008Q4

REPORT INFORMATION
  Report Type: 
  Country: None (occurrence: None)
  Receive Date: 20081111
  Receipt Date: 20071024
  Transmission Date: 20090506
  Serious: No
  Sender: FDA-Public Use
  Company Number: US-BRISTOL-MYERS SQUIBB COMPANY-13956776

PATIENT
  Age: 55 Year
  Sex: Male

DRUGS (2)
  1. SUSTIVA [Suspect]
  2. TRIZIVIR [Concomitant]

REACTIONS (1)
  - LIPOHYPERTROPHY [None]
